FAERS Safety Report 4619526-0 (Version None)
Quarter: 2005Q1

REPORT INFORMATION
  Report Type: 
  Country: None (occurrence: None)
  Receive Date: 20050324
  Receipt Date: 20050301
  Transmission Date: 20050727
  Serious: Yes (Hospitalization)
  Sender: FDA-Public Use
  Company Number: MED000050

PATIENT
  Age: 78 Year
  Sex: Female

DRUGS (2)
  1. TAZICEF [Suspect]
     Indication: ENDOPHTHALMITIS
     Dosage: 2 MG; CONJUNCTIVAL
  2. VANCOMYCIN HCL [Suspect]
     Indication: ENDOPHTHALMITIS
     Dosage: CONJUNCTIVAL

REACTIONS (2)
  - MEDICATION RESIDUE [None]
  - STAPHYLOCOCCAL INFECTION [None]
